FAERS Safety Report 11993028 (Version 2)
Quarter: 2016Q1

REPORT INFORMATION
  Report Type: Spontaneous
  Country: JP (occurrence: JP)
  Receive Date: 20160203
  Receipt Date: 20160307
  Transmission Date: 20160526
  Serious: Yes (Hospitalization, Other)
  Sender: FDA-Public Use
  Company Number: JP-ROCHE-1704322

PATIENT
  Age: 65 Year
  Sex: Female

DRUGS (8)
  1. CYTOSINE ARABINOSIDE [Concomitant]
     Active Substance: CYTARABINE
  2. RITUXAN [Suspect]
     Active Substance: RITUXIMAB
     Indication: DIFFUSE LARGE B-CELL LYMPHOMA
     Route: 065
  3. CYCLOPHOSPHAMIDE. [Concomitant]
     Active Substance: CYCLOPHOSPHAMIDE
  4. DEXAMETHASONE. [Concomitant]
     Active Substance: DEXAMETHASONE
  5. VINCRISTINE [Concomitant]
     Active Substance: VINCRISTINE
  6. PREDNISOLONE. [Concomitant]
     Active Substance: PREDNISOLONE
  7. ETOPOSIDE. [Concomitant]
     Active Substance: ETOPOSIDE
  8. DOXORUBICIN [Concomitant]
     Active Substance: DOXORUBICIN

REACTIONS (2)
  - Breast cancer [Unknown]
  - Pneumocystis jirovecii pneumonia [Recovering/Resolving]
